FAERS Safety Report 6183389-5 (Version None)
Quarter: 2009Q2

REPORT INFORMATION
  Report Type: 
  Country: None (occurrence: None)
  Receive Date: 20090506
  Receipt Date: 20090427
  Transmission Date: 20091009
  Serious: Yes (Hospitalization, Other)
  Sender: FDA-Public Use
  Company Number: JHP200900132

PATIENT
  Age: 30 Year
  Sex: Female

DRUGS (1)
  1. EPINEPHRINE [Suspect]
     Indication: SUICIDE ATTEMPT
     Dosage: 40 MG, INTRAVENOUS
     Route: 042

REACTIONS (6)
  - CARDIAC FAILURE [None]
  - CHEST PAIN [None]
  - ELECTROCARDIOGRAM QT PROLONGED [None]
  - INTENTIONAL OVERDOSE [None]
  - STRESS CARDIOMYOPATHY [None]
  - SUICIDE ATTEMPT [None]
